FAERS Safety Report 4542976-8 (Version None)
Quarter: 2005Q1

REPORT INFORMATION
  Report Type: 
  Country: None (occurrence: None)
  Receive Date: 20050103
  Receipt Date: 20041220
  Transmission Date: 20050727
  Serious: Yes (Hospitalization)
  Sender: FDA-Public Use
  Company Number: IT-JNJFOC-20041205534

PATIENT
  Sex: Male
  Weight: 75 kg

DRUGS (5)
  1. REOPRO [Suspect]
     Dosage: 04.0 ML IN 50 ML DILUENT AT 03.8 ML/H
     Route: 042
  2. REOPRO [Suspect]
     Indication: ACUTE MYOCARDIAL INFARCTION
     Route: 042
  3. RETEPLASE [Suspect]
     Indication: ACUTE MYOCARDIAL INFARCTION
     Route: 042
  4. HEPARIN [Concomitant]
     Route: 042
  5. HEPARIN [Concomitant]
     Route: 042

REACTIONS (2)
  - DRUG INTERACTION [None]
  - THROMBOCYTOPENIA [None]
